FAERS Safety Report 9601269 (Version 3)
Quarter: 2013Q4

REPORT INFORMATION
  Report Type: Report from Study
  Country: US (occurrence: US)
  Receive Date: 20131006
  Receipt Date: 20131024
  Transmission Date: 20140711
  Serious: Yes (Hospitalization)
  Sender: FDA-Public Use
  Company Number: PHEH2013US020672

PATIENT
  Age: 70 Year
  Sex: Male
  Weight: 102.95 kg

DRUGS (29)
  1. TOBI [Suspect]
     Indication: CHRONIC OBSTRUCTIVE PULMONARY DISEASE
     Dosage: 300 MG, BID
  2. TOBI [Suspect]
     Indication: PSEUDOMONAS INFECTION
     Dosage: 60 MG/ML, BID
     Dates: start: 20130726
  3. DUONEB [Concomitant]
     Dosage: 3 ML, 4 TIMES A DAY
  4. ALENDRONATE [Concomitant]
     Dosage: 70 MG, ONCE WEEK
     Route: 048
  5. ASPIRIN [Concomitant]
     Dosage: 81 MG, QD
     Route: 048
  6. DOCUSATE SODIUM [Concomitant]
     Dosage: 100 MG, PRN
     Route: 048
  7. IPRATROPIUM [Concomitant]
     Dosage: 2 PUFFS 4 TIME A DAY UNK
  8. SPIRIVA [Concomitant]
     Dosage: 1 DF, QD
  9. FLUTICASONE [Concomitant]
     Dosage: 2 PUFFS, BID
  10. LEXAPRO [Concomitant]
     Dosage: 1 DF, QD
     Route: 048
  11. PREDNISONE [Concomitant]
     Dosage: 4 DF, QD
     Route: 048
  12. METHADONE [Concomitant]
     Dosage: 4 DF, TID
     Route: 048
  13. ADVAIR DISKUS [Concomitant]
     Dosage: 1 PUFF  BID
  14. MULTIVITAMIN [Concomitant]
     Dosage: 1 DF, QD
     Route: 048
  15. SENNA [Concomitant]
     Dosage: 2 DF, QD BEDTIME
     Route: 048
  16. GUAIFENESIN [Concomitant]
     Dosage: 1 DF, EVERY 4 HOURS
     Route: 048
  17. SEROQUEL [Concomitant]
     Dosage: 1 DF, TID
     Route: 048
  18. VITAMIN B 12 [Concomitant]
     Dosage: 1 DF, QD
     Route: 048
  19. VITAMIN B 12 [Concomitant]
     Dosage: 1 UKN, QD
     Route: 048
  20. LANTUS [Concomitant]
     Dosage: UNK UKN, UNK
     Route: 058
  21. DOXEPIN [Concomitant]
     Dosage: 1 DF, TID
     Route: 048
  22. PANTOPRAZOLE [Concomitant]
     Dosage: 1 DF, QD
     Route: 048
  23. FUROSEMIDE [Concomitant]
     Dosage: 1 DF, QD
     Route: 048
  24. METFORMIN [Concomitant]
     Dosage: 1 DF, BID
     Route: 048
  25. DILT CD [Concomitant]
     Dosage: 1 DF, QD
     Route: 048
  26. SERTRALINE [Concomitant]
     Dosage: 1 DF, QD
     Route: 048
  27. QUETIAPINE [Concomitant]
     Dosage: 1 DF, BID
  28. OMEPRAZOLE [Concomitant]
     Dosage: 1 DF, QD
     Route: 048
  29. CLONAZEPAM [Concomitant]
     Dosage: 1 DF, TID

REACTIONS (2)
  - Infective exacerbation of chronic obstructive airways disease [Recovering/Resolving]
  - Nervousness [Recovering/Resolving]
